FAERS Safety Report 4954329-9 (Version None)
Quarter: 2006Q1

REPORT INFORMATION
  Report Type: 
  Country: None (occurrence: None)
  Receive Date: 20060322
  Receipt Date: 20060308
  Transmission Date: 20060701
  Serious: Yes (Life-Threatening)
  Sender: FDA-Public Use
  Company Number: 2006026015

PATIENT
  Age: 92 Year
  Sex: Female

DRUGS (26)
  1. UNASYN [Suspect]
     Indication: PNEUMONIA
     Dosage: 3 GRAM (1.5 GRAM, BID), ORAL
     Route: 048
     Dates: start: 20051113, end: 20051114
  2. AZITHROMYCIN [Suspect]
     Indication: PNEUMONIA
     Dosage: 500 MG (500 MG, 1 IN 1 D), ORAL
     Route: 048
     Dates: start: 20051111, end: 20051113
  3. ARICEPT [Suspect]
     Indication: DEMENTIA ALZHEIMER'S TYPE
     Dosage: 2.5 MG (2.5 MG, 1 IN 1 D), ORAL; SEE IMAGE
     Route: 048
     Dates: start: 20051014, end: 20051020
  4. ARICEPT [Suspect]
     Indication: DEMENTIA ALZHEIMER'S TYPE
     Dosage: 2.5 MG (2.5 MG, 1 IN 1 D), ORAL; SEE IMAGE
     Route: 048
     Dates: start: 20051021, end: 20051113
  5. ARICEPT [Suspect]
     Indication: DEMENTIA ALZHEIMER'S TYPE
     Dosage: 2.5 MG (2.5 MG, 1 IN 1 D), ORAL; SEE IMAGE
     Route: 048
     Dates: start: 20051229, end: 20060104
  6. ARICEPT [Suspect]
     Indication: DEMENTIA ALZHEIMER'S TYPE
     Dosage: 2.5 MG (2.5 MG, 1 IN 1 D), ORAL; SEE IMAGE
     Route: 048
     Dates: start: 20060105, end: 20060117
  7. SERMION (NICERGOLINE) [Concomitant]
  8. MUCOSTA (REBAMIPIDE) [Concomitant]
  9. NORVASC [Concomitant]
  10. PANTOSIN (PANTETHINE) [Concomitant]
  11. MAGNESIUM OXIDE (MAGNESIUM OXIDE) [Concomitant]
  12. NEUROTROPIN (ORGAN LYSATE, STANDARDIZED) [Concomitant]
  13. ALFACALCIDOL (ALFACALCIDOL) [Concomitant]
  14. SOLDEL E (SENNOSIDE A+B) [Concomitant]
  15. DOGMATYL (SULPIRIDE) [Concomitant]
  16. GASCON (DIMETICONE) [Concomitant]
  17. LAC B (LACTOBACILLUS BIFIDUS, LYOPHILIZED) [Concomitant]
  18. GANATON (ITOPRIDE HYDROCHLORIDE) [Concomitant]
  19. COLONEL (POLYCARBOPHIL CALCIUM) [Concomitant]
  20. ASPARA K (ASPARTATE POTASSIUM) [Concomitant]
  21. MUCODYNE (CARBOCISTEINE) [Concomitant]
  22. FERROMIA (FERROUS CITRATE) [Concomitant]
  23. VITAMEDIN CAPSULES (BENFOTIAMINE, CYANOCOBALAMIN, PYRIDOXINE HYDROCHLO [Concomitant]
  24. ASCORBIC ACID [Concomitant]
  25. AMINOPHYLLIN [Concomitant]
  26. BISOLVON (BROMHEXINE HYDROCHLORIDE) [Concomitant]

REACTIONS (6)
  - ASPIRATION [None]
  - BRONCHITIS ACUTE [None]
  - PNEUMONIA [None]
  - RENAL FAILURE ACUTE [None]
  - SOMNOLENCE [None]
  - UPPER RESPIRATORY TRACT INFLAMMATION [None]
